FAERS Safety Report 24249070 (Version 3)
Quarter: 2024Q3

REPORT INFORMATION
  Report Type: Report from Study
  Country: ZA (occurrence: ZA)
  Receive Date: 20240826
  Receipt Date: 20240905
  Transmission Date: 20241017
  Serious: Yes (Other)
  Sender: NOVARTIS
  Company Number: ZA-002147023-NVSC2024ZA170872

PATIENT
  Sex: Female

DRUGS (5)
  1. COSENTYX [Suspect]
     Active Substance: SECUKINUMAB
     Indication: Psoriatic arthropathy
     Dosage: 150 MG, QMO
     Route: 058
     Dates: start: 20210614
  2. TACROLIMUS [Concomitant]
     Active Substance: TACROLIMUS
     Indication: Liver transplant
     Dosage: 3 MG, QD
     Route: 065
     Dates: start: 20190309
  3. TACROLIMUS [Concomitant]
     Active Substance: TACROLIMUS
     Dosage: 2 MG, QD
     Route: 065
  4. URSODIOL [Concomitant]
     Active Substance: URSODIOL
     Indication: Primary biliary cholangitis
     Dosage: 250 MG, BID
     Route: 065
  5. CHLOROQUINE [Concomitant]
     Active Substance: CHLOROQUINE
     Indication: Product used for unknown indication
     Dosage: 200 MG, QD
     Route: 065
     Dates: start: 201902

REACTIONS (8)
  - C-reactive protein abnormal [Unknown]
  - Transaminases abnormal [Unknown]
  - Blood creatinine abnormal [Unknown]
  - Pulmonary tuberculosis [Unknown]
  - Type 2 diabetes mellitus [Unknown]
  - Osteoporosis [Unknown]
  - Gout [Unknown]
  - Fracture [Unknown]

NARRATIVE: CASE EVENT DATE: 20210101
